FAERS Safety Report 10341806 (Version 1)
Quarter: 2014Q3

REPORT INFORMATION
  Report Type: Spontaneous
  Country: IT (occurrence: None)
  Receive Date: 20140722
  Receipt Date: 20140722
  Transmission Date: 20150326
  Serious: Yes (Other)
  Sender: FDA-Public Use
  Company Number: AUR-APL-2014-07017

PATIENT
  Age: 43 Year
  Sex: Female

DRUGS (1)
  1. LEVOFLOXACIN [Suspect]
     Active Substance: LEVOFLOXACIN
     Indication: RESPIRATORY TRACT INFECTION
     Dosage: 250 MG, TOTAL
     Route: 048
     Dates: start: 20140311, end: 20140311

REACTIONS (2)
  - Laryngeal oedema [None]
  - Tongue oedema [None]

NARRATIVE: CASE EVENT DATE: 20140311
